FAERS Safety Report 11461345 (Version 1)
Quarter: 2015Q3

REPORT INFORMATION
  Report Type: Spontaneous
  Country: US (occurrence: US)
  Receive Date: 20150831
  Receipt Date: 20150831
  Transmission Date: 20151125
  Serious: No
  Sender: FDA-Public Use
  Company Number: US-ELI_LILLY_AND_COMPANY-US201001001502

PATIENT
  Age: 71 Year
  Sex: Male

DRUGS (11)
  1. COREG [Concomitant]
     Active Substance: CARVEDILOL
     Dosage: 25 MG, 2/D
  2. CHOLESTEROL [Concomitant]
     Active Substance: CHOLESTEROL
  3. CYMBALTA [Suspect]
     Active Substance: DULOXETINE HYDROCHLORIDE
     Indication: DIABETIC NEUROPATHY
     Dosage: 30 MG, DAILY (1/D)
     Route: 048
     Dates: start: 200912, end: 201001
  4. CYMBALTA [Suspect]
     Active Substance: DULOXETINE HYDROCHLORIDE
     Dosage: 30 MG, QOD
  5. LEVOTHYROXIN [Concomitant]
     Active Substance: LEVOTHYROXINE
     Dosage: 100 UG, UNK
  6. NOVOLOG [Concomitant]
     Active Substance: INSULIN ASPART
  7. ASA [Concomitant]
     Active Substance: ASPIRIN
  8. ENALAPRIL [Concomitant]
     Active Substance: ENALAPRIL
  9. CYMBALTA [Suspect]
     Active Substance: DULOXETINE HYDROCHLORIDE
     Dosage: 120 MG, DAILY (1/D)
  10. LEVEMIR [Concomitant]
     Active Substance: INSULIN DETEMIR
  11. CYMBALTA [Suspect]
     Active Substance: DULOXETINE HYDROCHLORIDE
     Dosage: 60 MG, DAILY (1/D)
     Route: 048
     Dates: start: 201001

REACTIONS (10)
  - Muscular weakness [Recovering/Resolving]
  - Abnormal behaviour [Unknown]
  - Confusional state [Recovering/Resolving]
  - Pain [Unknown]
  - Blood glucose increased [Unknown]
  - Lethargy [Recovering/Resolving]
  - Gait disturbance [Recovering/Resolving]
  - Fall [Recovered/Resolved]
  - Fatigue [Unknown]
  - Drug effect decreased [Recovered/Resolved]

NARRATIVE: CASE EVENT DATE: 201001
